FAERS Safety Report 9103153 (Version 1)
Quarter: 2013Q1

REPORT INFORMATION
  Report Type: Spontaneous
  Country: US (occurrence: US)
  Receive Date: 20130219
  Receipt Date: 20130219
  Transmission Date: 20140127
  Serious: Yes (Other)
  Sender: FDA-Public Use
  Company Number: US-TEVA-385125USA

PATIENT
  Sex: Female

DRUGS (1)
  1. APRI [Suspect]
     Dates: start: 201301

REACTIONS (5)
  - Suicidal ideation [Unknown]
  - Depressed mood [Unknown]
  - Feeling abnormal [Unknown]
  - Mental disorder [Unknown]
  - Chills [Unknown]
